FAERS Safety Report 11914354 (Version 1)
Quarter: 2016Q1

REPORT INFORMATION
  Report Type: Spontaneous
  Country: US (occurrence: US)
  Receive Date: 20160113
  Receipt Date: 20160113
  Transmission Date: 20160526
  Serious: Yes (Hospitalization)
  Sender: FDA-Public Use
  Company Number: US-ALEXION PHARMACEUTICALS INC-A201600051

PATIENT
  Sex: Male

DRUGS (1)
  1. SOLIRIS [Suspect]
     Active Substance: ECULIZUMAB
     Indication: HAEMOLYTIC URAEMIC SYNDROME
     Dosage: UNK
     Route: 042
     Dates: start: 20160102

REACTIONS (8)
  - Asthenia [Unknown]
  - Abdominal pain upper [Unknown]
  - Headache [Unknown]
  - Labile blood pressure [Unknown]
  - Nausea [Unknown]
  - Heart rate abnormal [Unknown]
  - Orthostatic hypotension [Unknown]
  - Haemorrhage [Unknown]

NARRATIVE: CASE EVENT DATE: 201601
